FAERS Safety Report 6747623-2 (Version None)
Quarter: 2010Q2

REPORT INFORMATION
  Report Type: 
  Country: None (occurrence: None)
  Receive Date: 20100528
  Receipt Date: 20100518
  Transmission Date: 20101027
  Serious: Yes (Hospitalization, Other)
  Sender: FDA-Public Use
  Company Number: PHHY2010CA25403

PATIENT
  Sex: Male

DRUGS (1)
  1. SANDOSTATIN LAR [Suspect]
     Indication: PANCREATIC NEUROENDOCRINE TUMOUR
     Dosage: 30 MG EVERY 4 WEEKS
     Route: 030
     Dates: start: 20081102

REACTIONS (5)
  - ABDOMINAL PAIN [None]
  - COLONOSCOPY ABNORMAL [None]
  - GASTROENTERITIS VIRAL [None]
  - GASTROINTESTINAL INFLAMMATION [None]
  - MASS [None]
